FAERS Safety Report 24965222 (Version 2)
Quarter: 2025Q1

REPORT INFORMATION
  Report Type: Spontaneous
  Country: US (occurrence: US)
  Receive Date: 20250213
  Receipt Date: 20250228
  Transmission Date: 20250409
  Serious: Yes (Hospitalization)
  Sender: GLAXOSMITHKLINE
  Company Number: US-GSKCCFUS-Case-02217555_AE-121598

PATIENT

DRUGS (1)
  1. NUCALA [Suspect]
     Active Substance: MEPOLIZUMAB
     Indication: Asthma
     Dates: end: 2024

REACTIONS (3)
  - Oxygen saturation decreased [Unknown]
  - Fluid imbalance [Unknown]
  - Product dose omission issue [Unknown]
